FAERS Safety Report 14256873 (Version 3)
Quarter: 2018Q2

REPORT INFORMATION
  Report Type: Spontaneous
  Country: US (occurrence: US)
  Receive Date: 20171206
  Receipt Date: 20180615
  Transmission Date: 20180711
  Serious: Yes (Hospitalization, Other)
  Sender: FDA-Public Use
  Company Number: US-PFIZER INC-2017041233

PATIENT
  Age: 65 Year
  Sex: Female

DRUGS (7)
  1. IBRANCE [Suspect]
     Active Substance: PALBOCICLIB
     Indication: BREAST CANCER
     Dosage: 125 MG, CYCLIC (ONCE DAILY FOR 21 DAYS, THEN 7 DAYS OFF)
     Route: 048
     Dates: start: 20160927
  2. LETROZOLE. [Concomitant]
     Active Substance: LETROZOLE
     Indication: BREAST CANCER
     Dosage: 2.5 MG, 1X/DAY
     Dates: start: 20170927
  3. CALCIUM, MAGNESIUM, AND ZINC WITH VITAMIN D3 [Concomitant]
     Indication: SUPPLEMENTATION THERAPY
     Dosage: 4 DF, DAILY
  4. PROBIOTIC [Concomitant]
     Active Substance: PROBIOTICS NOS
     Dosage: 1 (UNIT UNKNOWN), DAILY
  5. KERATIN [Concomitant]
     Active Substance: KERATIN
     Indication: NAIL DISORDER
     Dosage: 100 MG, UNK
  6. OMEGA 3 KRILL OIL [Concomitant]
     Indication: ARTHRALGIA
     Dosage: 2 (UNIT UNKNOWN), DAILY
  7. BIOTIN [Concomitant]
     Active Substance: BIOTIN
     Indication: NAIL DISORDER
     Dosage: 20000 UG, DAILY

REACTIONS (9)
  - Pyrexia [Unknown]
  - Full blood count decreased [Unknown]
  - Dyspnoea [Unknown]
  - Neoplasm progression [Unknown]
  - Anxiety [Recovered/Resolved]
  - Staphylococcal infection [Unknown]
  - Malaise [Unknown]
  - Neutropenia [Unknown]
  - Pulmonary oedema [Unknown]

NARRATIVE: CASE EVENT DATE: 20171130
